FAERS Safety Report 22656206 (Version 1)
Quarter: 2023Q2

REPORT INFORMATION
  Report Type: Spontaneous
  Country: IT (occurrence: None)
  Receive Date: 20230629
  Receipt Date: 20230629
  Transmission Date: 20230721
  Serious: Yes (Death)
  Sender: FDA-Public Use
  Company Number: 2023A149111

PATIENT
  Age: 81 Year
  Sex: Female

DRUGS (1)
  1. DAPAGLIFLOZIN [Suspect]
     Active Substance: DAPAGLIFLOZIN
     Dosage: DAPAGLIFOZIN 10 MG AL GIORNO
     Route: 048
     Dates: start: 20230530, end: 20230608

REACTIONS (3)
  - Multiple organ dysfunction syndrome [Fatal]
  - Diabetic ketoacidosis [Fatal]
  - Atrial fibrillation [Fatal]

NARRATIVE: CASE EVENT DATE: 20230608
